FAERS Safety Report 7741541-9 (Version None)
Quarter: 2011Q3

REPORT INFORMATION
  Report Type: 
  Country: None (occurrence: None)
  Receive Date: 20110909
  Receipt Date: 20110831
  Transmission Date: 20111222
  Serious: Yes (Hospitalization)
  Sender: FDA-Public Use
  Company Number: DE-GILEAD-E2B_00001480

PATIENT
  Sex: Female
  Weight: 70 kg

DRUGS (1)
  1. BLINDED AMBRISENTAN [Suspect]
     Indication: PULMONARY ARTERIAL HYPERTENSION
     Route: 048
     Dates: start: 20110708

REACTIONS (1)
  - VASCULAR PSEUDOANEURYSM [None]
